FAERS Safety Report 8195638-2 (Version None)
Quarter: 2012Q1

REPORT INFORMATION
  Report Type: 
  Country: None (occurrence: None)
  Receive Date: 20120308
  Receipt Date: 20120301
  Transmission Date: 20120608
  Serious: Yes (Hospitalization, Disabling)
  Sender: FDA-Public Use
  Company Number: NO-PFIZER INC-2012056247

PATIENT
  Age: 33 Year
  Sex: Female

DRUGS (1)
  1. TRIPHASIL-21 [Suspect]
     Indication: CONTRACEPTION
     Dosage: UNK
     Dates: end: 19960716

REACTIONS (1)
  - CEREBRAL INFARCTION [None]
